FAERS Safety Report 12247004 (Version 1)
Quarter: 2016Q2

REPORT INFORMATION
  Report Type: Report from Study
  Country: US (occurrence: US)
  Receive Date: 20160407
  Receipt Date: 20160407
  Transmission Date: 20160815
  Serious: Yes (Hospitalization, Other)
  Sender: FDA-Public Use
  Company Number: PHHO2013US019530

PATIENT
  Age: 66 Year
  Sex: Male
  Weight: 70.4 kg

DRUGS (4)
  1. TRAMETINIB [Suspect]
     Active Substance: TRAMETINIB
     Indication: NODULAR MELANOMA
     Dosage: 2 MG, QD
     Route: 048
     Dates: start: 20130219, end: 20130828
  2. TRAMETINIB [Suspect]
     Active Substance: TRAMETINIB
     Dosage: 2 MG, QD
     Route: 048
     Dates: start: 20130910, end: 20130930
  3. DABRAFENIB [Suspect]
     Active Substance: DABRAFENIB
     Indication: NODULAR MELANOMA
     Dosage: 150 MG, BID
     Route: 048
     Dates: start: 20110224, end: 20130828
  4. DABRAFENIB [Suspect]
     Active Substance: DABRAFENIB
     Dosage: 150 MG, BID
     Route: 048
     Dates: start: 20130910, end: 20130930

REACTIONS (3)
  - Pyrexia [Recovered/Resolved]
  - Pneumonia [Recovered/Resolved]
  - Chills [Recovered/Resolved]

NARRATIVE: CASE EVENT DATE: 20130829
